FAERS Safety Report 7133430-8 (Version None)
Quarter: 2010Q4

REPORT INFORMATION
  Report Type: 
  Country: None (occurrence: None)
  Receive Date: 20101117
  Receipt Date: 20101021
  Transmission Date: 20110411
  Serious: No
  Sender: FDA-Public Use
  Company Number: 2010-00913

PATIENT
  Age: 47 Year
  Sex: Female
  Weight: 53.0709 kg

DRUGS (2)
  1. ZICAM COLD REMEDY ORAL MIST [Suspect]
     Dosage: 1 DOSE
     Dates: start: 20101021, end: 20101021
  2. IBUPROFEN [Concomitant]

REACTIONS (2)
  - AGEUSIA [None]
  - DRY MOUTH [None]
